FAERS Safety Report 4417854-5 (Version None)
Quarter: 2004Q2

REPORT INFORMATION
  Report Type: 
  Country: None (occurrence: None)
  Receive Date: 20040621
  Receipt Date: 20040301
  Transmission Date: 20050107
  Serious: Yes (Other)
  Sender: FDA-Public Use
  Company Number: 2004008519

PATIENT
  Age: 54 Year
  Sex: Female

DRUGS (1)
  1. VFEND [Suspect]
     Indication: ILL-DEFINED DISORDER
     Dosage: 800 MG (400 MG, 2 IN 1 D)
     Dates: start: 20030801, end: 20040213

REACTIONS (4)
  - ARTHRITIS INFECTIVE [None]
  - INTENTIONAL OVERDOSE [None]
  - MEDICATION ERROR [None]
  - PORPHYRIA NON-ACUTE [None]
